FAERS Safety Report 20463058 (Version 5)
Quarter: 2022Q1

REPORT INFORMATION
  Report Type: Spontaneous
  Country: TR (occurrence: TR)
  Receive Date: 20220211
  Receipt Date: 20220328
  Transmission Date: 20220423
  Serious: Yes (Other)
  Sender: FDA-Public Use
  Company Number: TR-PFIZER INC-202200153990

PATIENT
  Sex: Female

DRUGS (1)
  1. AVIBACTAM SODIUM\CEFTAZIDIME [Suspect]
     Active Substance: AVIBACTAM SODIUM\CEFTAZIDIME
     Indication: Pneumonia klebsiella
     Dosage: UNK
     Dates: start: 20210712, end: 20210725

REACTIONS (1)
  - Pseudomonas test positive [Unknown]

NARRATIVE: CASE EVENT DATE: 20210717
